FAERS Safety Report 6890698-0 (Version None)
Quarter: 2010Q3

REPORT INFORMATION
  Report Type: 
  Country: None (occurrence: None)
  Receive Date: 20100731
  Receipt Date: 20090209
  Transmission Date: 20110219
  Serious: No
  Sender: FDA-Public Use
  Company Number: US-PFIZER INC-2008097745

PATIENT
  Age: 58 Year
  Sex: Female

DRUGS (1)
  1. LIPITOR [Suspect]
     Dates: start: 20080901, end: 20081114

REACTIONS (4)
  - ARTHRALGIA [None]
  - DEPRESSION [None]
  - FATIGUE [None]
  - PAIN [None]
